FAERS Safety Report 15976543 (Version 2)
Quarter: 2019Q2

REPORT INFORMATION
  Report Type: Spontaneous
  Country: JP (occurrence: JP)
  Receive Date: 20190218
  Receipt Date: 20190408
  Transmission Date: 20190711
  Serious: Yes (Death, Hospitalization)
  Sender: FDA-Public Use
  Company Number: JP-BAYER-2018-044260

PATIENT
  Age: 42 Year
  Sex: Male
  Weight: 56.6 kg

DRUGS (6)
  1. NEXAVAR [Suspect]
     Active Substance: SORAFENIB
     Dosage: DAILY DOSE 800 G
     Route: 048
     Dates: start: 20171018, end: 20180118
  2. ENTECAVIR. [Concomitant]
     Active Substance: ENTECAVIR
     Dosage: 0.5 MG, QD
  3. BIO-THREE [Concomitant]
     Active Substance: HERBALS
     Indication: DIARRHOEA
     Dosage: DAILY DOSE 3 G
     Route: 048
     Dates: start: 20171229, end: 20180204
  4. STIVARGA [Suspect]
     Active Substance: REGORAFENIB
     Indication: HEPATOCELLULAR CARCINOMA
     Dosage: 160 MG, QD
     Route: 048
     Dates: start: 20180212, end: 20180214
  5. LOPEMIN [LOPERAMIDE HYDROCHLORIDE] [Concomitant]
     Indication: DIARRHOEA
     Dosage: 1 MG, BID
     Dates: start: 20171229, end: 20180204
  6. BARACLUDE [Concomitant]
     Active Substance: ENTECAVIR
     Indication: HEPATITIS B
     Dosage: 0.5 MG, QD
     Route: 048
     Dates: start: 20151127, end: 20180204

REACTIONS (5)
  - Abdominal pain upper [Recovering/Resolving]
  - Vomiting [Recovering/Resolving]
  - Hepatocellular carcinoma [Fatal]
  - Therapeutic product effect incomplete [None]
  - Pancreatitis acute [Recovering/Resolving]

NARRATIVE: CASE EVENT DATE: 20180213
